FAERS Safety Report 18895210 (Version 8)
Quarter: 2024Q3

REPORT INFORMATION
  Report Type: Spontaneous
  Country: US (occurrence: US)
  Receive Date: 20210215
  Receipt Date: 20240805
  Transmission Date: 20241016
  Serious: No
  Sender: PFIZER
  Company Number: US-PFIZER INC-2021130134

PATIENT
  Age: 76 Year
  Sex: Female

DRUGS (5)
  1. IBRANCE [Suspect]
     Active Substance: PALBOCICLIB
     Dosage: 125 MG
     Dates: start: 20210118
  2. IBRANCE [Suspect]
     Active Substance: PALBOCICLIB
     Dosage: 75 MG
  3. IBRANCE [Suspect]
     Active Substance: PALBOCICLIB
     Dosage: 100 MG
  4. IBRANCE [Suspect]
     Active Substance: PALBOCICLIB
     Dosage: 75 MG, CYCLIC (TAKE 1 TAB DAYS 1-21 EVERY 35 DAYS), 3 WEEKS ON, 2 WEEKS OFF
  5. IBRANCE [Suspect]
     Active Substance: PALBOCICLIB
     Dosage: 75 MG, CYCLIC (TAKE 1 TAB DAYS 1-21 EVERY 35 DAYS), 3 WEEKS ON, 2 WEEKS OFF
     Route: 048
     Dates: start: 20240103

REACTIONS (4)
  - Nausea [Unknown]
  - Fatigue [Unknown]
  - Laboratory test abnormal [Unknown]
  - Off label use [Unknown]
